FAERS Safety Report 20484275 (Version 5)
Quarter: 2025Q3

REPORT INFORMATION
  Report Type: Report from Study
  Country: CA (occurrence: None)
  Receive Date: 20220217
  Receipt Date: 20250822
  Transmission Date: 20251021
  Serious: Yes (Other)
  Sender: ORION
  Company Number: CA-PFIZER INC-202200254537

PATIENT
  Age: 47 Year
  Sex: Female

DRUGS (24)
  1. METHOTREXATE [Suspect]
     Active Substance: METHOTREXATE
     Indication: Product used for unknown indication
  2. METHOTREXATE [Suspect]
     Active Substance: METHOTREXATE
  3. METHOTREXATE [Suspect]
     Active Substance: METHOTREXATE
  4. XELJANZ [Suspect]
     Active Substance: TOFACITINIB CITRATE
     Indication: Product used for unknown indication
  5. KEVZARA [Suspect]
     Active Substance: SARILUMAB
     Indication: Rheumatoid arthritis
  6. ACETAMINOPHEN\OXYCODONE HYDROCHLORIDE\OXYCODONE TEREPHTHALATE [Concomitant]
     Active Substance: ACETAMINOPHEN\OXYCODONE HYDROCHLORIDE\OXYCODONE TEREPHTHALATE
  7. BUDESONIDE-FORMOTEROL FUMARATE [Concomitant]
  8. BUDESONIDE-FORMOTEROL FUMARATE [Concomitant]
  9. CORTISONE ACETATE [Concomitant]
     Active Substance: CORTISONE ACETATE
     Indication: Rheumatoid arthritis
  10. FOLIC ACID [Concomitant]
     Active Substance: FOLIC ACID
  11. FOLIC ACID [Concomitant]
     Active Substance: FOLIC ACID
  12. NORETHINDRONE [Concomitant]
     Active Substance: NORETHINDRONE
  13. NORETHINDRONE [Concomitant]
     Active Substance: NORETHINDRONE
  14. PREDNISONE [Concomitant]
     Active Substance: PREDNISONE
  15. PREDNISONE [Concomitant]
     Active Substance: PREDNISONE
  16. ALBUTEROL [Concomitant]
     Active Substance: ALBUTEROL
  17. SYNTHROID [Concomitant]
     Active Substance: LEVOTHYROXINE SODIUM
  18. SYNTHROID [Concomitant]
     Active Substance: LEVOTHYROXINE SODIUM
  19. TRAMADOL [Concomitant]
     Active Substance: TRAMADOL
  20. TRAMADOL [Concomitant]
     Active Substance: TRAMADOL
  21. XARELTO [Concomitant]
     Active Substance: RIVAROXABAN
  22. XARELTO [Concomitant]
     Active Substance: RIVAROXABAN
  23. ACETAMINOPHEN\OXYCODONE HYDROCHLORIDE [Concomitant]
     Active Substance: ACETAMINOPHEN\OXYCODONE HYDROCHLORIDE
  24. NABILONE [Concomitant]
     Active Substance: NABILONE

REACTIONS (8)
  - Blood iron decreased [Not Recovered/Not Resolved]
  - Haemoglobin decreased [Not Recovered/Not Resolved]
  - Heavy menstrual bleeding [Not Recovered/Not Resolved]
  - Thrombosis [Not Recovered/Not Resolved]
  - Transfusion [Not Recovered/Not Resolved]
  - Thoracic vertebral fracture [Not Recovered/Not Resolved]
  - Fall [Not Recovered/Not Resolved]
  - Spinal fracture [Not Recovered/Not Resolved]
